FAERS Safety Report 4682249-6 (Version None)
Quarter: 2005Q2

REPORT INFORMATION
  Report Type: 
  Country: None (occurrence: None)
  Receive Date: 20050527
  Receipt Date: 20050310
  Transmission Date: 20051028
  Serious: Yes (Other)
  Sender: FDA-Public Use
  Company Number: 2005AA000154

PATIENT
  Age: 40 Year
  Sex: Male

DRUGS (1)
  1. PHARMALGEN (802) VESPULA SPP. (YELLOW JACKET VENOM) [Suspect]
     Indication: HYPERSENSITIVITY
     Dosage: 100 MICROGRAM, SUB CU, QM
     Dates: start: 20041001

REACTIONS (1)
  - HYPERTENSIVE CRISIS [None]
